FAERS Safety Report 8767002 (Version 1)
Quarter: 2012Q4

REPORT INFORMATION
  Report Type: 
  Country: US (occurrence: US)
  Receive Date: 20120904
  Receipt Date: 20120904
  Transmission Date: 20130627
  Serious: No
  Sender: FDA-Public Use
  Company Number: US-MYLANLABS-2012S1005294

PATIENT
  Age: 6 Year
  Sex: Male

DRUGS (1)
  1. LORATADINE TABLETS USP [Suspect]

REACTIONS (1)
  - Drug effect decreased [Not Recovered/Not Resolved]
